FAERS Safety Report 24193973 (Version 2)
Quarter: 2024Q3

REPORT INFORMATION
  Report Type: Spontaneous
  Country: JP (occurrence: JP)
  Receive Date: 20240809
  Receipt Date: 20240930
  Transmission Date: 20241017
  Serious: Yes (Death, Hospitalization)
  Sender: ELI LILLY AND CO
  Company Number: JP-ELI_LILLY_AND_COMPANY-JP202408004669

PATIENT
  Age: 76 Year
  Sex: Male

DRUGS (2)
  1. CYRAMZA [Suspect]
     Active Substance: RAMUCIRUMAB
     Indication: Adenosquamous cell lung cancer stage II
     Route: 041
  2. DOCETAXEL [Suspect]
     Active Substance: DOCETAXEL\DOCETAXEL ANHYDROUS
     Indication: Adenosquamous cell lung cancer stage II
     Route: 065

REACTIONS (4)
  - Tumour perforation [Fatal]
  - Peritonitis [Fatal]
  - Malignant neoplasm progression [Fatal]
  - Myelosuppression [Unknown]
